FAERS Safety Report 12869783 (Version 1)
Quarter: 2016Q4

REPORT INFORMATION
  Report Type: Spontaneous
  Country: US (occurrence: US)
  Receive Date: 20161020
  Receipt Date: 20161020
  Transmission Date: 20170207
  Serious: No
  Sender: FDA-Public Use
  Company Number: US-AMGEN-USASP2016115454

PATIENT
  Age: 39 Year
  Sex: Female

DRUGS (2)
  1. CORLANOR [Suspect]
     Active Substance: IVABRADINE HYDROCHLORIDE
     Indication: PRODUCT USED FOR UNKNOWN INDICATION
     Dosage: UNK
     Route: 065
  2. NORTHERA [Concomitant]
     Active Substance: DROXIDOPA
     Dosage: 100 MG, UNK
     Dates: start: 201502

REACTIONS (14)
  - Weight increased [Unknown]
  - Fatigue [Not Recovered/Not Resolved]
  - Dyspnoea [Unknown]
  - Nasopharyngitis [Unknown]
  - Chest discomfort [Unknown]
  - Dysphagia [Unknown]
  - Oropharyngeal pain [Unknown]
  - Sinus tachycardia [Unknown]
  - Dizziness [Not Recovered/Not Resolved]
  - Abdominal distension [Unknown]
  - Headache [Unknown]
  - Pyrexia [Not Recovered/Not Resolved]
  - Palpitations [Unknown]
  - Vertigo [Not Recovered/Not Resolved]

NARRATIVE: CASE EVENT DATE: 20160729
